FAERS Safety Report 11631547 (Version 2)
Quarter: 2016Q1

REPORT INFORMATION
  Report Type: Report from Study
  Country: US (occurrence: US)
  Receive Date: 20151015
  Receipt Date: 20160216
  Transmission Date: 20160525
  Serious: No
  Sender: FDA-Public Use
  Company Number: US-AMGEN-USASP2015105875

PATIENT
  Age: 55 Year
  Sex: Female

DRUGS (2)
  1. ENBREL [Suspect]
     Active Substance: ETANERCEPT
     Indication: SJOGREN^S SYNDROME
  2. ENBREL [Suspect]
     Active Substance: ETANERCEPT
     Indication: RHEUMATOID ARTHRITIS
     Dosage: 50 MG, WEEKLY
     Route: 065
     Dates: start: 20151003

REACTIONS (16)
  - Condition aggravated [Not Recovered/Not Resolved]
  - Anxiety [Unknown]
  - Skin injury [Unknown]
  - Fatigue [Unknown]
  - Back pain [Unknown]
  - Hypersomnia [Unknown]
  - Pain [Unknown]
  - Rash [Unknown]
  - Rash papular [Unknown]
  - Asthenia [Unknown]
  - Mobility decreased [Unknown]
  - Rash pruritic [Unknown]
  - Feeling abnormal [Unknown]
  - Arthralgia [Unknown]
  - Scratch [Unknown]
  - Muscular weakness [Unknown]

NARRATIVE: CASE EVENT DATE: 20151003
